FAERS Safety Report 17605886 (Version 5)
Quarter: 2020Q2

REPORT INFORMATION
  Report Type: Report from Study
  Country: US (occurrence: US)
  Receive Date: 20200331
  Receipt Date: 20200616
  Transmission Date: 20200713
  Serious: Yes (Hospitalization, Other)
  Sender: FDA-Public Use
  Company Number: NVSC2020US083349

PATIENT
  Age: 70 Year
  Sex: Male

DRUGS (1)
  1. ENTRESTO [Suspect]
     Active Substance: SACUBITRIL\VALSARTAN
     Indication: CARDIAC FAILURE CHRONIC
     Dosage: 50 MG (24/26 MG), BID
     Route: 048
     Dates: start: 201912

REACTIONS (16)
  - Drug ineffective [Not Recovered/Not Resolved]
  - Chest discomfort [Recovering/Resolving]
  - Ejection fraction abnormal [Not Recovered/Not Resolved]
  - Sinus disorder [Unknown]
  - Dehydration [Unknown]
  - Urinary tract infection [Unknown]
  - Pyrexia [Recovered/Resolved]
  - Chest pain [Recovering/Resolving]
  - Anxiety [Not Recovered/Not Resolved]
  - Blood urine [Unknown]
  - Hypotension [Recovered/Resolved]
  - Cough [Unknown]
  - Intercepted medication error [Unknown]
  - Pneumonia [Recovering/Resolving]
  - Pleural effusion [Recovering/Resolving]
  - Throat clearing [Unknown]

NARRATIVE: CASE EVENT DATE: 202002
